FAERS Safety Report 6408324-3 (Version None)
Quarter: 2009Q4

REPORT INFORMATION
  Report Type: 
  Country: None (occurrence: None)
  Receive Date: 20091021
  Receipt Date: 20091014
  Transmission Date: 20100525
  Serious: Yes (Death, Other)
  Sender: FDA-Public Use
  Company Number: LB-ELI_LILLY_AND_COMPANY-LB200910003850

PATIENT
  Age: 23 Year
  Sex: Female

DRUGS (2)
  1. GEMCITABINE HCL [Suspect]
     Indication: HODGKIN'S DISEASE
     Dosage: 25MG/M2 EVERY 21 DAY CYCLE
     Route: 042
     Dates: end: 20091001
  2. NAVELBINE [Concomitant]
     Indication: HODGKIN'S DISEASE
     Dosage: 25 MG/M2, ON DAY 1 AND DAY 8 EVERY 21 DAYS
     Route: 065
     Dates: end: 20091001

REACTIONS (6)
  - DEATH [None]
  - ORGAN FAILURE [None]
  - PANCYTOPENIA [None]
  - RENAL FAILURE [None]
  - SEPTIC SHOCK [None]
  - THROMBOTIC THROMBOCYTOPENIC PURPURA [None]
